FAERS Safety Report 4434132-9 (Version None)
Quarter: 2004Q3

REPORT INFORMATION
  Report Type: 
  Country: None (occurrence: None)
  Receive Date: 20040825
  Receipt Date: 20040812
  Transmission Date: 20050211
  Serious: Yes (Hospitalization, Other)
  Sender: FDA-Public Use
  Company Number: 2004054977

PATIENT
  Age: 40 Year
  Sex: Male

DRUGS (13)
  1. DIFLUCAN [Suspect]
     Indication: FUNGAL INFECTION
     Dosage: 100 MG (1 IN 1 D), ORAL
     Route: 048
     Dates: start: 20040702, end: 20040810
  2. MICAFUNGIN (MICAFUNGIN) [Concomitant]
  3. BACTRIM [Concomitant]
  4. COLESTILAN (COLESTILAN) [Concomitant]
  5. FAMOTIDINE [Concomitant]
  6. UROSDEOXYCHOLIC ACID (URSODEOXYCHOLIC ACID) [Concomitant]
  7. LACTULOSE [Concomitant]
  8. AROSEMIDE (AROSEMIDE) [Concomitant]
  9. KANAMYCIN (KANAMYCIN) [Concomitant]
  10. DIMETICONE (DIMETICONE) [Concomitant]
  11. MOSAPRIDE CITRATE (MOSAPRIDE CITRATE) [Concomitant]
  12. QUETIAPINE FUMARATE (QUETIAPINE FUMARATE) [Concomitant]
  13. MENATRETENONE (MENATRETENONE) [Concomitant]

REACTIONS (3)
  - BONE MARROW DEPRESSION [None]
  - HEPATIC CIRRHOSIS [None]
  - RETICULOCYTE COUNT DECREASED [None]
